FAERS Safety Report 14254378 (Version 1)
Quarter: 2017Q4

REPORT INFORMATION
  Report Type: Spontaneous
  Country: IT (occurrence: IT)
  Receive Date: 20171205
  Receipt Date: 20171205
  Transmission Date: 20180321
  Serious: Yes (Hospitalization)
  Sender: FDA-Public Use
  Company Number: IT-TEVA-2017-IT-827983

PATIENT
  Age: 69 Year
  Sex: Male
  Weight: 75 kg

DRUGS (4)
  1. OXALIPLATIN. [Suspect]
     Active Substance: OXALIPLATIN
     Indication: COLORECTAL CANCER METASTATIC
     Route: 065
     Dates: start: 20160705
  2. FLUOROURACIL. [Suspect]
     Active Substance: FLUOROURACIL
     Indication: COLORECTAL CANCER METASTATIC
     Route: 065
     Dates: start: 20160705
  3. FOLIC ACID. [Suspect]
     Active Substance: FOLIC ACID
     Indication: COLORECTAL CANCER METASTATIC
     Route: 065
     Dates: start: 20160705
  4. VECTIBIX [Suspect]
     Active Substance: PANITUMUMAB
     Indication: COLORECTAL CANCER METASTATIC
     Dates: start: 20160705

REACTIONS (5)
  - Conjunctivitis [Recovering/Resolving]
  - Rash pustular [Recovering/Resolving]
  - Jaundice [Recovering/Resolving]
  - Palmar-plantar erythrodysaesthesia syndrome [Recovering/Resolving]
  - Paronychia [Recovering/Resolving]

NARRATIVE: CASE EVENT DATE: 2016
